FAERS Safety Report 5168961-3 (Version None)
Quarter: 2006Q4

REPORT INFORMATION
  Report Type: 
  Country: None (occurrence: None)
  Receive Date: 20061211
  Receipt Date: 20061204
  Transmission Date: 20070319
  Serious: Yes (Hospitalization)
  Sender: FDA-Public Use
  Company Number: JP-JPN-A200605189

PATIENT
  Age: 53 Year
  Sex: Female
  Weight: 57 kg

DRUGS (11)
  1. ALKERAN [Suspect]
     Indication: STEM CELL TRANSPLANT
     Dosage: 150MG PER DAY
     Route: 042
     Dates: start: 20050627, end: 20050628
  2. NEUTROGIN [Concomitant]
     Dates: start: 20050701, end: 20050710
  3. KEITEN [Concomitant]
     Dates: start: 20050703, end: 20050709
  4. ZOVIRAX [Concomitant]
     Route: 042
     Dates: start: 20050703, end: 20050711
  5. FUNGUARD [Concomitant]
     Route: 042
     Dates: start: 20050703, end: 20050711
  6. CARBENIN [Concomitant]
     Route: 042
     Dates: start: 20050710, end: 20050711
  7. FULCALIQ [Concomitant]
     Route: 042
     Dates: start: 20050701, end: 20050705
  8. FULCALIQ [Concomitant]
     Route: 042
     Dates: start: 20050706, end: 20050711
  9. ZOVIRAX [Concomitant]
     Route: 048
     Dates: start: 20050624, end: 20050804
  10. UNKNOWN DRUG [Concomitant]
     Route: 048
     Dates: start: 20050624, end: 20051007
  11. CIPROFLOXACIN [Concomitant]
     Route: 048
     Dates: start: 20050624, end: 20051007

REACTIONS (4)
  - ANOREXIA [None]
  - BLOOD ALBUMIN DECREASED [None]
  - DIARRHOEA [None]
  - FEBRILE NEUTROPENIA [None]
